FAERS Safety Report 25932242 (Version 1)
Quarter: 2025Q4

REPORT INFORMATION
  Report Type: Spontaneous
  Country: US (occurrence: US)
  Receive Date: 20251016
  Receipt Date: 20251016
  Transmission Date: 20260118
  Serious: No
  Sender: ELI LILLY AND COMPANY
  Company Number: US-ELI_LILLY_AND_COMPANY-US202510016457

PATIENT
  Age: 32 Year
  Sex: Male

DRUGS (2)
  1. OLUMIANT [Suspect]
     Active Substance: BARICITINIB
     Indication: Alopecia
     Dosage: 4 MG, UNKNOWN
     Route: 065
     Dates: start: 202506
  2. OLUMIANT [Suspect]
     Active Substance: BARICITINIB
     Indication: Eczema

REACTIONS (1)
  - Eczema [Unknown]
